FAERS Safety Report 4596906-3 (Version None)
Quarter: 2005Q1

REPORT INFORMATION
  Report Type: 
  Country: None (occurrence: None)
  Receive Date: 20050225
  Receipt Date: 20050216
  Transmission Date: 20050727
  Serious: Yes (Hospitalization, Other)
  Sender: FDA-Public Use
  Company Number: 2004-08-1932

PATIENT
  Age: 38 Year
  Sex: Male
  Weight: 70 kg

DRUGS (10)
  1. PEG-INTRON [Suspect]
     Indication: HEPATITIS C
     Dosage: 120 MCG QWK SUBCUTANEOUS
     Route: 058
     Dates: start: 20040527, end: 20040902
  2. RIBAVIRIN [Suspect]
     Indication: HEPATITIS C
     Dosage: BLINDED ORAL
     Route: 048
     Dates: start: 20040527, end: 20040909
  3. CITALOPRAM [Suspect]
     Indication: DEPRESSION
     Dates: start: 20040706
  4. XANAX [Suspect]
     Indication: DEPRESSION
     Dates: start: 20040716
  5. FLUOXETINE [Concomitant]
  6. SERENASE [Concomitant]
  7. BISOPROLOL FUMARATE [Concomitant]
  8. TRAZODONE HCL [Concomitant]
  9. DAFALGAN [Concomitant]
  10. HALOPERIDOL [Concomitant]

REACTIONS (14)
  - AMNESIA [None]
  - CARDIOMEGALY [None]
  - CONCUSSION [None]
  - DEPRESSION [None]
  - EAR HAEMORRHAGE [None]
  - FALL [None]
  - HAEMATOCRIT DECREASED [None]
  - HAEMATOTYMPANUM [None]
  - HEADACHE [None]
  - HYPOACUSIS [None]
  - NECK PAIN [None]
  - SKULL FRACTURED BASE [None]
  - SYNCOPE [None]
  - WHITE BLOOD CELL COUNT DECREASED [None]
